FAERS Safety Report 26056192 (Version 1)
Quarter: 2025Q4

REPORT INFORMATION
  Report Type: Spontaneous
  Country: US (occurrence: US)
  Receive Date: 20251118
  Receipt Date: 20251118
  Transmission Date: 20260118
  Serious: No
  Sender: ALVOGEN
  Company Number: US-ALVOGEN-2025098509

PATIENT
  Sex: Female

DRUGS (8)
  1. TERIPARATIDE [Suspect]
     Active Substance: TERIPARATIDE
     Indication: Supplementation therapy
     Dosage: OTHER PEN WITH NO ISSUE
     Dates: start: 202506
  2. TERIPARATIDE [Suspect]
     Active Substance: TERIPARATIDE
     Indication: Supplementation therapy
     Dosage: EXPIRATION DATE: JUL-2026 ?RECEIVED ON 29-JUL-2025
  3. NEBIVOLOL [Concomitant]
     Active Substance: NEBIVOLOL
     Indication: Blood pressure abnormal
     Dosage: (SUBSTITUTE FOR BYSTOLIC)
  4. HYDROCHLOROTHIAZIDE [Concomitant]
     Active Substance: HYDROCHLOROTHIAZIDE
     Indication: Product used for unknown indication
  5. LEVOTHYROXINE [Concomitant]
     Active Substance: LEVOTHYROXINE
     Indication: Product used for unknown indication
     Dosage: (SUBSTITUTE FOR SYNTHROID)
  6. MOBIC [Concomitant]
     Active Substance: MELOXICAM
     Indication: Product used for unknown indication
     Dosage: SUBSTITUTE FOR MELOXICAM
  7. CALCIUM [Concomitant]
     Active Substance: CALCIUM
     Indication: Product used for unknown indication
  8. VITAMINS [Concomitant]
     Active Substance: VITAMINS
     Indication: Product used for unknown indication

REACTIONS (1)
  - Product dose omission issue [Unknown]

NARRATIVE: CASE EVENT DATE: 20250729
